FAERS Safety Report 6980975-7 (Version None)
Quarter: 2010Q3

REPORT INFORMATION
  Report Type: 
  Country: None (occurrence: None)
  Receive Date: 20100914
  Receipt Date: 20100903
  Transmission Date: 20110219
  Serious: Yes (Hospitalization)
  Sender: FDA-Public Use
  Company Number: A0880948A

PATIENT
  Age: 67 Year
  Sex: Female

DRUGS (1)
  1. AVANDARYL [Suspect]
     Dosage: 1TAB PER DAY
     Dates: start: 20070201, end: 20070801

REACTIONS (2)
  - CEREBROVASCULAR ACCIDENT [None]
  - SILENT MYOCARDIAL INFARCTION [None]
